FAERS Safety Report 6652214-8 (Version None)
Quarter: 2010Q1

REPORT INFORMATION
  Report Type: 
  Country: None (occurrence: None)
  Receive Date: 20100309
  Receipt Date: 20091116
  Transmission Date: 20100710
  Serious: No
  Sender: FDA-Public Use
  Company Number: 2009SP037116

PATIENT
  Age: 15 Year
  Sex: Male

DRUGS (8)
  1. SAPHRIS [Suspect]
     Indication: DRUG USE FOR UNKNOWN INDICATION
     Dosage: 5 MG; QAM;
     Dates: start: 20091001
  2. MOBAN (CON.) [Concomitant]
  3. LEXAPRO (CON.) [Concomitant]
  4. LAMICTAL (CON.) [Concomitant]
  5. INTUNIV (CON.) [Concomitant]
  6. ALLEGRA (CON.) [Concomitant]
  7. VITAMIN D (CON.) [Concomitant]
  8. MULTIVITAMINS (CON.) [Concomitant]

REACTIONS (2)
  - DYSGEUSIA [None]
  - VOMITING [None]
